FAERS Safety Report 21628379 (Version 1)
Quarter: 2022Q4

REPORT INFORMATION
  Report Type: Report from Study
  Country: GB (occurrence: GB)
  Receive Date: 20221122
  Receipt Date: 20221122
  Transmission Date: 20230112
  Serious: Yes (Death, Other)
  Sender: FDA-Public Use
  Company Number: GB-GILEAD-2022-0605959

PATIENT
  Age: 51 Year
  Sex: Male

DRUGS (1)
  1. SOFOSBUVIR\VELPATASVIR\VOXILAPREVIR [Suspect]
     Active Substance: SOFOSBUVIR\VELPATASVIR\VOXILAPREVIR
     Indication: Product used for unknown indication
     Dosage: 400MG/100 MG
     Route: 048
     Dates: start: 202108

REACTIONS (1)
  - Death [Fatal]

NARRATIVE: CASE EVENT DATE: 20220523
